FAERS Safety Report 14005562 (Version 1)
Quarter: 2017Q3

REPORT INFORMATION
  Report Type: Other
  Country: US (occurrence: US)
  Receive Date: 20170923
  Receipt Date: 20170923
  Transmission Date: 20171128
  Serious: No
  Sender: FDA-Public Use
  Company Number: US-APOTEX-2017AP015001

PATIENT
  Age: 71 Year
  Sex: Female

DRUGS (2)
  1. CLARISPRAY NASAL ALLERGY [Suspect]
     Active Substance: FLUTICASONE PROPIONATE
     Indication: UPPER-AIRWAY COUGH SYNDROME
  2. CLARISPRAY NASAL ALLERGY [Suspect]
     Active Substance: FLUTICASONE PROPIONATE
     Indication: RHINORRHOEA
     Route: 045

REACTIONS (3)
  - Drug ineffective [Unknown]
  - Sinus pain [Unknown]
  - Epistaxis [Unknown]
